FAERS Safety Report 5257187-0 (Version None)
Quarter: 2007Q1

REPORT INFORMATION
  Report Type: 
  Country: None (occurrence: None)
  Receive Date: 20070307
  Receipt Date: 20070227
  Transmission Date: 20070707
  Serious: Yes (Hospitalization)
  Sender: FDA-Public Use
  Company Number: US-GLAXOSMITHKLINE-A0641183A

PATIENT
  Age: 80 Year
  Sex: Male

DRUGS (5)
  1. COREG [Suspect]
     Dosage: 6.5MG TWICE PER DAY
     Route: 048
  2. PLAVIX [Concomitant]
  3. DIOVAN [Concomitant]
  4. POTASSIUM ACETATE [Concomitant]
  5. LASIX [Concomitant]

REACTIONS (7)
  - ASTHENIA [None]
  - DIZZINESS [None]
  - FALL [None]
  - FATIGUE [None]
  - HYPOAESTHESIA [None]
  - RASH [None]
  - SYNCOPE [None]
